FAERS Safety Report 16270770 (Version 1)
Quarter: 2019Q2

REPORT INFORMATION
  Report Type: Spontaneous
  Country: US (occurrence: US)
  Receive Date: 20190505
  Receipt Date: 20190505
  Transmission Date: 20190711
  Serious: Yes (Other)
  Sender: FDA-Public Use
  Company Number: US-JNJFOC-20190427928

PATIENT
  Age: 51 Year
  Sex: Female
  Weight: 90.72 kg

DRUGS (1)
  1. XARELTO [Suspect]
     Active Substance: RIVAROXABAN
     Indication: PULMONARY EMBOLISM
     Route: 048
     Dates: start: 20190410

REACTIONS (3)
  - Haemorrhage [Recovered/Resolved]
  - Wrong technique in product usage process [Unknown]
  - Product availability issue [Unknown]

NARRATIVE: CASE EVENT DATE: 201904
